FAERS Safety Report 7168852-2 (Version None)
Quarter: 2010Q4

REPORT INFORMATION
  Report Type: 
  Country: None (occurrence: None)
  Receive Date: 20101216
  Receipt Date: 20100323
  Transmission Date: 20110411
  Serious: Yes (Hospitalization)
  Sender: FDA-Public Use
  Company Number: US-AMGEN-TCS383589

PATIENT

DRUGS (2)
  1. ENBREL [Suspect]
     Indication: PSORIATIC ARTHROPATHY
     Dosage: 50 MG, QWK
     Route: 058
     Dates: start: 20091218, end: 20091231
  2. PREDNISONE [Concomitant]
     Dosage: UNK UNK, UNK
     Dates: start: 20091101

REACTIONS (2)
  - PSORIASIS [None]
  - PUSTULAR PSORIASIS [None]
